FAERS Safety Report 21172101 (Version 9)
Quarter: 2022Q4

REPORT INFORMATION
  Report Type: Report from Study
  Country: US (occurrence: US)
  Receive Date: 20220804
  Receipt Date: 20221212
  Transmission Date: 20230113
  Serious: Yes (Death, Hospitalization)
  Sender: FDA-Public Use
  Company Number: US-NOVARTISPH-NVSC2021US135069

PATIENT
  Age: 73 Year
  Sex: Female
  Weight: 104.7 kg

DRUGS (118)
  1. DIOVAN [Suspect]
     Active Substance: VALSARTAN
     Indication: Cardiac failure acute
     Dosage: UNK
     Route: 048
     Dates: start: 20210407
  2. LOVENOX [Concomitant]
     Active Substance: ENOXAPARIN SODIUM
     Indication: Haemorrhage prophylaxis
     Dosage: UNK
     Route: 065
     Dates: start: 20210613, end: 20210616
  3. LOVENOX [Concomitant]
     Active Substance: ENOXAPARIN SODIUM
     Indication: Acute myocardial infarction
     Dosage: UNK
     Route: 065
     Dates: start: 20211024, end: 20211024
  4. LOVENOX [Concomitant]
     Active Substance: ENOXAPARIN SODIUM
     Indication: Prophylaxis
     Dosage: UNK
     Route: 065
     Dates: start: 20211114, end: 20211117
  5. LOVENOX [Concomitant]
     Active Substance: ENOXAPARIN SODIUM
     Dosage: UNK
     Route: 065
     Dates: start: 20220105, end: 20220111
  6. LOVENOX [Concomitant]
     Active Substance: ENOXAPARIN SODIUM
     Dosage: UNK
     Route: 065
     Dates: start: 20220605, end: 20220607
  7. LOVENOX [Concomitant]
     Active Substance: ENOXAPARIN SODIUM
     Dosage: UNK
     Route: 065
     Dates: start: 20220608, end: 20220610
  8. LOVENOX [Concomitant]
     Active Substance: ENOXAPARIN SODIUM
     Dosage: 30 MG, NIGHTLY
     Route: 058
  9. PANTOPRAZOLE SODIUM [Concomitant]
     Active Substance: PANTOPRAZOLE SODIUM
     Indication: Gastrooesophageal reflux disease
     Dosage: UNK
     Route: 065
     Dates: start: 20210613, end: 20211026
  10. PANTOPRAZOLE SODIUM [Concomitant]
     Active Substance: PANTOPRAZOLE SODIUM
     Dosage: UNK
     Route: 065
     Dates: start: 20220225, end: 20220605
  11. METFORMIN [Concomitant]
     Active Substance: METFORMIN HYDROCHLORIDE
     Indication: Type 2 diabetes mellitus
     Dosage: UNK
     Route: 065
     Dates: start: 20180216, end: 20210901
  12. PLAVIX [Concomitant]
     Active Substance: CLOPIDOGREL BISULFATE
     Indication: Coronary artery disease
     Dosage: UNK
     Route: 065
     Dates: start: 20210206, end: 20220605
  13. PLAVIX [Concomitant]
     Active Substance: CLOPIDOGREL BISULFATE
     Dosage: UNK
     Route: 065
     Dates: start: 20220608
  14. PLAVIX [Concomitant]
     Active Substance: CLOPIDOGREL BISULFATE
     Dosage: UNK
     Route: 065
     Dates: start: 20220608
  15. PLAVIX [Concomitant]
     Active Substance: CLOPIDOGREL BISULFATE
     Dosage: 75 MG, DAILY
     Route: 065
  16. LASIX [Concomitant]
     Active Substance: FUROSEMIDE
     Indication: Cardiac failure
     Dosage: UNK
     Route: 065
     Dates: start: 20211029, end: 20211105
  17. LASIX [Concomitant]
     Active Substance: FUROSEMIDE
     Dosage: UNK
     Route: 065
     Dates: start: 20211107, end: 20211114
  18. LASIX [Concomitant]
     Active Substance: FUROSEMIDE
     Dosage: UNK
     Route: 065
     Dates: start: 20210617, end: 20210902
  19. LASIX [Concomitant]
     Active Substance: FUROSEMIDE
     Dosage: UNK
     Route: 065
     Dates: start: 20210905, end: 20211024
  20. LASIX [Concomitant]
     Active Substance: FUROSEMIDE
     Dosage: UNK
     Route: 065
     Dates: start: 20220611
  21. LASIX [Concomitant]
     Active Substance: FUROSEMIDE
     Dosage: UNK
     Route: 065
     Dates: start: 20210613
  22. LASIX [Concomitant]
     Active Substance: FUROSEMIDE
     Dosage: UNK
     Route: 065
     Dates: start: 20210902, end: 20210905
  23. LASIX [Concomitant]
     Active Substance: FUROSEMIDE
     Dosage: UNK
     Route: 065
     Dates: start: 20210614, end: 20210615
  24. LASIX [Concomitant]
     Active Substance: FUROSEMIDE
     Dosage: UNK
     Route: 065
     Dates: start: 20211114, end: 20211118
  25. LASIX [Concomitant]
     Active Substance: FUROSEMIDE
     Dosage: UNK
     Route: 065
     Dates: start: 20220105, end: 20220109
  26. LASIX [Concomitant]
     Active Substance: FUROSEMIDE
     Dosage: UNK
     Route: 065
     Dates: start: 20220109, end: 20220224
  27. LASIX [Concomitant]
     Active Substance: FUROSEMIDE
     Dosage: UNK
     Route: 065
     Dates: start: 20220224, end: 20220226
  28. LASIX [Concomitant]
     Active Substance: FUROSEMIDE
     Dosage: UNK
     Route: 065
     Dates: start: 20220304, end: 20220605
  29. LASIX [Concomitant]
     Active Substance: FUROSEMIDE
     Dosage: UNK
     Route: 065
     Dates: start: 20220605, end: 20220605
  30. LASIX [Concomitant]
     Active Substance: FUROSEMIDE
     Dosage: UNK
     Route: 065
     Dates: start: 20220605, end: 20220611
  31. LASIX [Concomitant]
     Active Substance: FUROSEMIDE
     Dosage: UNK
     Route: 065
  32. LASIX [Concomitant]
     Active Substance: FUROSEMIDE
     Dosage: 40 MG, BID
     Route: 042
  33. ALLOPURINOL [Concomitant]
     Active Substance: ALLOPURINOL
     Indication: Gout
     Dosage: UNK
     Route: 065
     Dates: start: 20210421, end: 20210707
  34. ALLOPURINOL [Concomitant]
     Active Substance: ALLOPURINOL
     Dosage: UNK
     Route: 065
     Dates: start: 20211029, end: 20220605
  35. FERRLECIT [Concomitant]
     Active Substance: SODIUM FERRIC GLUCONATE COMPLEX
     Indication: Anaemia
     Dosage: UNK
     Route: 065
     Dates: start: 20211028, end: 20211028
  36. POTASSIUM CHLORIDE [Concomitant]
     Active Substance: POTASSIUM CHLORIDE
     Indication: General physical condition
     Dosage: UNK
     Route: 065
     Dates: start: 20220225, end: 20220228
  37. POTASSIUM CHLORIDE [Concomitant]
     Active Substance: POTASSIUM CHLORIDE
     Route: 065
     Dates: start: 20220610, end: 20220611
  38. ASPIRIN [Concomitant]
     Active Substance: ASPIRIN
     Indication: Back pain
     Dosage: UNK
     Route: 065
     Dates: start: 20220605, end: 20220605
  39. ASPIRIN [Concomitant]
     Active Substance: ASPIRIN
     Dosage: UNK
     Route: 065
     Dates: start: 20180216
  40. ASPIRIN [Concomitant]
     Active Substance: ASPIRIN
     Dosage: 81 MG, DAILY
     Route: 048
  41. ZOFRAN [Concomitant]
     Active Substance: ONDANSETRON HYDROCHLORIDE
     Indication: Gastrooesophageal reflux disease
     Dosage: UNK
     Route: 065
     Dates: start: 20220605
  42. DUONEB [Concomitant]
     Active Substance: ALBUTEROL SULFATE\IPRATROPIUM BROMIDE
     Indication: Chronic obstructive pulmonary disease
     Dosage: UNK
     Route: 065
     Dates: start: 20220605
  43. DUONEB [Concomitant]
     Active Substance: ALBUTEROL SULFATE\IPRATROPIUM BROMIDE
     Dosage: 3 ML, Q4H, NEBULIZATION
     Route: 065
  44. CLONIDINE [Concomitant]
     Active Substance: CLONIDINE
     Indication: Hypertension
     Dosage: UNK
     Route: 065
     Dates: start: 20211105, end: 20211107
  45. LIDOCAINE [Concomitant]
     Active Substance: LIDOCAINE
     Indication: Gastrooesophageal reflux disease
     Dosage: UNK
     Route: 065
     Dates: start: 20220607, end: 20220607
  46. METOLAZONE [Concomitant]
     Active Substance: METOLAZONE
     Indication: Cardiac failure
     Dosage: UNK
     Route: 065
     Dates: start: 20210505, end: 20210613
  47. METOLAZONE [Concomitant]
     Active Substance: METOLAZONE
     Dosage: UNK
     Route: 065
     Dates: start: 20210617, end: 20210901
  48. METOLAZONE [Concomitant]
     Active Substance: METOLAZONE
     Dosage: UNK
     Route: 065
     Dates: start: 20211024, end: 20211024
  49. METOLAZONE [Concomitant]
     Active Substance: METOLAZONE
     Dosage: UNK
     Route: 065
     Dates: start: 20220609, end: 20220610
  50. METOLAZONE [Concomitant]
     Active Substance: METOLAZONE
     Dosage: UNK
     Route: 065
     Dates: start: 20220610, end: 20220610
  51. METOLAZONE [Concomitant]
     Active Substance: METOLAZONE
     Dosage: 5 MG, TWICE A WEEK
     Route: 048
  52. ISOSORBIDE [Concomitant]
     Active Substance: ISOSORBIDE
     Indication: Coronary artery disease
     Dosage: UNK
     Route: 065
     Dates: start: 20211118, end: 20220605
  53. ISOSORBIDE [Concomitant]
     Active Substance: ISOSORBIDE
     Indication: Chest pain
     Dosage: UNK
     Route: 065
     Dates: start: 20220608
  54. ISOSORBIDE [Concomitant]
     Active Substance: ISOSORBIDE
     Dosage: UNK
     Route: 065
     Dates: start: 20220609
  55. ISOSORBIDE [Concomitant]
     Active Substance: ISOSORBIDE
     Dosage: UNK
     Route: 065
     Dates: start: 20220609
  56. ISOSORBIDE [Concomitant]
     Active Substance: ISOSORBIDE
     Dosage: 30 MG, 24 HR TABLET
     Route: 048
  57. SODIUM BICARBONATE [Concomitant]
     Active Substance: SODIUM BICARBONATE
     Indication: Gastrooesophageal reflux disease
     Dosage: UNK
     Route: 065
     Dates: start: 20220613
  58. MEROPENEM [Concomitant]
     Active Substance: MEROPENEM
     Indication: Blood disorder prophylaxis
     Dosage: UNK
     Route: 065
     Dates: start: 20220613
  59. NOREPINEPHRINE [Concomitant]
     Active Substance: NOREPINEPHRINE
     Indication: Hypotension
     Dosage: UNK
     Route: 065
     Dates: start: 20220105, end: 20220105
  60. NOREPINEPHRINE [Concomitant]
     Active Substance: NOREPINEPHRINE
     Route: 065
     Dates: start: 20220613, end: 20220613
  61. AMOXICILLIN [Concomitant]
     Active Substance: AMOXICILLIN
     Indication: Sinusitis
     Dosage: UNK
     Route: 065
     Dates: start: 20210616, end: 20210623
  62. AMOXICILLIN [Concomitant]
     Active Substance: AMOXICILLIN
     Indication: Nasopharyngitis
     Dosage: UNK
     Route: 065
     Dates: start: 20220405, end: 20220425
  63. MAALOX ANTACID [Concomitant]
     Active Substance: ALUMINUM HYDROXIDE\DIMETHICONE\MAGNESIUM HYDROXIDE
     Indication: Gastrooesophageal reflux disease
     Dosage: UNK
     Route: 065
     Dates: start: 20220105, end: 20220105
  64. LORATADINE [Concomitant]
     Active Substance: LORATADINE
     Indication: Sinusitis
     Dosage: UNK
     Route: 065
     Dates: start: 20210616, end: 20210707
  65. LORATADINE [Concomitant]
     Active Substance: LORATADINE
     Indication: Nasopharyngitis
     Dosage: UNK
     Route: 065
     Dates: start: 20220405, end: 20220605
  66. TRAMADOL [Concomitant]
     Active Substance: TRAMADOL
     Indication: Back pain
     Dosage: UNK
     Route: 065
     Dates: start: 20210616, end: 20210616
  67. NPH INSULIN [Concomitant]
     Active Substance: INSULIN BEEF
     Indication: Type 2 diabetes mellitus
     Dosage: UNK
     Route: 065
     Dates: start: 20210615, end: 20210617
  68. NPH INSULIN [Concomitant]
     Active Substance: INSULIN BEEF
     Dosage: UNK
     Route: 065
     Dates: start: 20210903, end: 20210905
  69. NPH INSULIN [Concomitant]
     Active Substance: INSULIN BEEF
     Dosage: 0-15 UNITS AC + HS
     Route: 058
  70. FLONASE [Concomitant]
     Active Substance: FLUTICASONE PROPIONATE
     Indication: Seasonal allergy
     Dosage: UNK
     Route: 065
     Dates: start: 20210614, end: 20220605
  71. FLONASE [Concomitant]
     Active Substance: FLUTICASONE PROPIONATE
     Dosage: UNK
     Route: 065
     Dates: start: 20220606
  72. GABAPENTIN [Concomitant]
     Active Substance: GABAPENTIN
     Indication: Type 2 diabetes mellitus
     Dosage: UNK
     Route: 065
     Dates: start: 20180302, end: 20210901
  73. GABAPENTIN [Concomitant]
     Active Substance: GABAPENTIN
     Dosage: UNK
     Route: 065
     Dates: start: 20210901, end: 20211029
  74. GABAPENTIN [Concomitant]
     Active Substance: GABAPENTIN
     Dosage: UNK
     Route: 065
     Dates: start: 20211029, end: 20220227
  75. GABAPENTIN [Concomitant]
     Active Substance: GABAPENTIN
     Dosage: UNK
     Route: 065
     Dates: start: 20220304, end: 20220605
  76. GABAPENTIN [Concomitant]
     Active Substance: GABAPENTIN
     Dosage: 300 MG, TID, CAPSULE
     Route: 048
  77. RESTORIL [Concomitant]
     Active Substance: TEMAZEPAM
     Indication: General physical condition
     Dosage: UNK
     Route: 065
     Dates: start: 20210905, end: 20210905
  78. DILAUDID [Concomitant]
     Active Substance: HYDROMORPHONE HYDROCHLORIDE
     Indication: Back pain
     Dosage: UNK
     Route: 065
     Dates: start: 20210904, end: 20210904
  79. CARVEDILOL [Concomitant]
     Active Substance: CARVEDILOL
     Indication: Hypertension
     Dosage: UNK
     Route: 065
     Dates: start: 20210902, end: 20210905
  80. GLIPIZIDE [Concomitant]
     Active Substance: GLIPIZIDE
     Indication: Type 2 diabetes mellitus
     Dosage: UNK
     Route: 065
     Dates: start: 20210905, end: 20211024
  81. GLIPIZIDE [Concomitant]
     Active Substance: GLIPIZIDE
     Dosage: UNK
     Route: 065
     Dates: start: 20211029, end: 20211105
  82. GLIPIZIDE [Concomitant]
     Active Substance: GLIPIZIDE
     Dosage: UNK
     Route: 065
     Dates: start: 20211107, end: 20211114
  83. GLIPIZIDE [Concomitant]
     Active Substance: GLIPIZIDE
     Dosage: UNK
     Route: 065
     Dates: start: 20211118, end: 20220105
  84. GLIPIZIDE [Concomitant]
     Active Substance: GLIPIZIDE
     Dosage: UNK
     Route: 065
     Dates: start: 20220112, end: 20220224
  85. GLIPIZIDE [Concomitant]
     Active Substance: GLIPIZIDE
     Dosage: UNK
     Route: 065
     Dates: start: 20220304, end: 20220605
  86. GLIPIZIDE [Concomitant]
     Active Substance: GLIPIZIDE
     Dosage: 10 MG 24 HR TABLET
     Route: 048
  87. ZYRTEC [Concomitant]
     Active Substance: CETIRIZINE HYDROCHLORIDE
     Indication: Seasonal allergy
     Dosage: UNK
     Route: 065
     Dates: start: 20210905, end: 20211024
  88. ZYRTEC [Concomitant]
     Active Substance: CETIRIZINE HYDROCHLORIDE
     Dosage: UNK
     Route: 065
     Dates: start: 20211029, end: 20220108
  89. ZYRTEC [Concomitant]
     Active Substance: CETIRIZINE HYDROCHLORIDE
     Dosage: UNK
     Route: 065
     Dates: start: 20220112, end: 20220605
  90. CLARITIN [Concomitant]
     Active Substance: LORATADINE
     Indication: Seasonal allergy
     Dosage: UNK
     Route: 065
     Dates: start: 20211024, end: 20211029
  91. CLARITIN [Concomitant]
     Active Substance: LORATADINE
     Dosage: UNK
     Route: 065
     Dates: start: 20220108, end: 20220109
  92. TYLENOL [Concomitant]
     Active Substance: ACETAMINOPHEN
     Indication: Back pain
     Dosage: UNK
     Route: 065
     Dates: start: 20220105, end: 20220111
  93. TYLENOL [Concomitant]
     Active Substance: ACETAMINOPHEN
     Dosage: UNK
     Route: 065
     Dates: start: 20220605
  94. VANCOMYCIN [Concomitant]
     Active Substance: VANCOMYCIN
     Indication: Blood disorder prophylaxis
     Dosage: UNK
     Route: 065
     Dates: start: 20220613
  95. VANCOMYCIN [Concomitant]
     Active Substance: VANCOMYCIN
     Dosage: UNK
     Route: 065
     Dates: start: 20220613
  96. PANTOPRAZOLE [Concomitant]
     Active Substance: PANTOPRAZOLE
     Indication: Gastrooesophageal reflux disease
     Dosage: UNK
     Route: 065
     Dates: start: 20210613, end: 20211026
  97. PANTOPRAZOLE [Concomitant]
     Active Substance: PANTOPRAZOLE
     Dosage: UNK
     Route: 065
     Dates: start: 20220225, end: 20220605
  98. PROTONIX [Concomitant]
     Active Substance: PANTOPRAZOLE SODIUM
     Indication: Peptic ulcer
     Dosage: UNK
     Route: 065
     Dates: start: 20211024, end: 20211028
  99. PROTONIX [Concomitant]
     Active Substance: PANTOPRAZOLE SODIUM
     Dosage: UNK
     Route: 065
     Dates: start: 20211028, end: 20211114
  100. PROTONIX [Concomitant]
     Active Substance: PANTOPRAZOLE SODIUM
     Dosage: UNK
     Route: 065
     Dates: start: 20211114, end: 20211118
  101. PROTONIX [Concomitant]
     Active Substance: PANTOPRAZOLE SODIUM
     Dosage: 40 MG, TABLET
     Route: 065
  102. ALBUTEROL [Concomitant]
     Active Substance: ALBUTEROL
     Indication: General physical condition
     Dosage: UNK
     Route: 065
     Dates: start: 20211024, end: 20220304
  103. TRAZODONE [Concomitant]
     Active Substance: TRAZODONE HYDROCHLORIDE
     Indication: General physical condition
     Dosage: UNK
     Route: 065
     Dates: start: 20211115, end: 20220605
  104. TRAZODONE [Concomitant]
     Active Substance: TRAZODONE HYDROCHLORIDE
     Dosage: 50 MG, TABLET
     Route: 048
  105. TOPROL XL [Concomitant]
     Active Substance: METOPROLOL SUCCINATE
     Indication: Chest pain
     Dosage: UNK
     Route: 065
     Dates: start: 20211118, end: 20220107
  106. TOPROL XL [Concomitant]
     Active Substance: METOPROLOL SUCCINATE
     Dosage: UNK
     Route: 065
     Dates: start: 20220107, end: 20220225
  107. TOPROL XL [Concomitant]
     Active Substance: METOPROLOL SUCCINATE
     Dosage: 25 MG, 24 HR TABLET
     Route: 048
  108. LEVOPHED [Concomitant]
     Active Substance: NOREPINEPHRINE BITARTRATE
     Indication: Hypotension
     Dosage: UNK
     Route: 065
     Dates: start: 20220104
  109. LEXAPRO [Concomitant]
     Active Substance: ESCITALOPRAM OXALATE
     Indication: Depression
     Dosage: UNK
     Route: 065
     Dates: start: 20220106, end: 20220111
  110. NITROGLYCERIN [Concomitant]
     Active Substance: NITROGLYCERIN
     Indication: Coronary artery disease
     Dosage: UNK
     Route: 065
     Dates: start: 20180302, end: 20220605
  111. HUMALOG [Concomitant]
     Active Substance: INSULIN LISPRO
     Indication: Type 2 diabetes mellitus
     Dosage: UNK
     Route: 065
     Dates: start: 20211025, end: 20211029
  112. HUMALOG [Concomitant]
     Active Substance: INSULIN LISPRO
     Dosage: UNK
     Route: 065
     Dates: start: 20220605
  113. HUMALOG [Concomitant]
     Active Substance: INSULIN LISPRO
     Dosage: UNK
     Route: 065
     Dates: start: 20211105, end: 20211107
  114. HUMALOG [Concomitant]
     Active Substance: INSULIN LISPRO
     Dosage: UNK
     Route: 065
     Dates: start: 20211117, end: 20211117
  115. HUMALOG [Concomitant]
     Active Substance: INSULIN LISPRO
     Dosage: UNK
     Route: 065
     Dates: start: 20220106, end: 20220111
  116. HUMULIN NOS [Concomitant]
     Active Substance: INSULIN HUMAN
     Indication: Type 2 diabetes mellitus
     Dosage: UNK
     Route: 065
     Dates: start: 20220225, end: 20220304
  117. HYDROCODONE [Concomitant]
     Active Substance: HYDROCODONE
     Indication: Back pain
     Dosage: UNK
     Route: 065
     Dates: start: 20220301, end: 20220304
  118. HYDROCODONE [Concomitant]
     Active Substance: HYDROCODONE
     Dosage: UNK
     Route: 065
     Dates: start: 20220605, end: 20220608

REACTIONS (15)
  - Cardiac failure congestive [Recovered/Resolved]
  - Cardiac failure congestive [Recovered/Resolved]
  - Cardiac failure congestive [Recovered/Resolved]
  - Acute left ventricular failure [Recovered/Resolved]
  - Chronic left ventricular failure [Recovered/Resolved]
  - Renal failure [Recovered/Resolved]
  - Chronic kidney disease [Recovered/Resolved]
  - Chronic kidney disease [Not Recovered/Not Resolved]
  - Acute respiratory failure [Fatal]
  - Shock [Fatal]
  - Cardio-respiratory arrest [Fatal]
  - Cardiac failure congestive [Fatal]
  - Cardiac failure congestive [Recovered/Resolved]
  - Hypoglycaemia [Recovered/Resolved]
  - Bronchitis [Recovered/Resolved]

NARRATIVE: CASE EVENT DATE: 20210613
